FAERS Safety Report 18929653 (Version 2)
Quarter: 2021Q4

REPORT INFORMATION
  Report Type: Spontaneous
  Country: GB (occurrence: GB)
  Receive Date: 20210223
  Receipt Date: 20211104
  Transmission Date: 20220303
  Serious: Yes (Other)
  Sender: FDA-Public Use
  Company Number: None

PATIENT
  Age: 10 Year
  Sex: Male
  Weight: 30 kg

DRUGS (2)
  1. METHYLPHENIDATE [Suspect]
     Active Substance: METHYLPHENIDATE
     Indication: Attention deficit hyperactivity disorder
     Dosage: 5 MILLIGRAM, QD (LATER 10 MG IN THE MORNING)
     Route: 048
     Dates: start: 20201221
  2. METHYLPHENIDATE [Suspect]
     Active Substance: METHYLPHENIDATE
     Dosage: 10 MILLIGRAM, QD (MORMING)
     Route: 048
     Dates: start: 20210128, end: 20210129

REACTIONS (2)
  - Tinnitus [Recovered/Resolved]
  - Hallucination, auditory [Unknown]

NARRATIVE: CASE EVENT DATE: 20210124
